FAERS Safety Report 15456286 (Version 1)
Quarter: 2018Q3

REPORT INFORMATION
  Report Type: Spontaneous
  Country: US (occurrence: US)
  Receive Date: 20180928
  Receipt Date: 20180928
  Transmission Date: 20181010
  Serious: Yes (Hospitalization, Disabling)
  Sender: FDA-Public Use
  Company Number: None

PATIENT
  Sex: Female

DRUGS (1)
  1. ORENCIA [Suspect]
     Active Substance: ABATACEPT
     Indication: RHEUMATOID ARTHRITIS
     Dates: start: 20170927, end: 20180515

REACTIONS (6)
  - Acute respiratory failure [None]
  - Pulmonary fibrosis [None]
  - Hypoxia [None]
  - Pneumonia [None]
  - Interstitial lung disease [None]
  - Pulmonary hypertension [None]
